FAERS Safety Report 20907472 (Version 1)
Quarter: 2022Q2

REPORT INFORMATION
  Report Type: Spontaneous
  Country: IT (occurrence: IT)
  Receive Date: 20220602
  Receipt Date: 20220602
  Transmission Date: 20220721
  Serious: Yes (Death, Other)
  Sender: FDA-Public Use
  Company Number: IT-JNJFOC-20220558922

PATIENT

DRUGS (1)
  1. IMBRUVICA [Suspect]
     Active Substance: IBRUTINIB
     Indication: Chronic lymphocytic leukaemia
     Route: 048

REACTIONS (5)
  - Sudden cardiac death [Fatal]
  - Neutropenia [Unknown]
  - Atrial fibrillation [Unknown]
  - Infection [Unknown]
  - Hypertension [Unknown]
